FAERS Safety Report 7033485-5 (Version None)
Quarter: 2010Q4

REPORT INFORMATION
  Report Type: 
  Country: None (occurrence: None)
  Receive Date: 20101007
  Receipt Date: 20101004
  Transmission Date: 20110411
  Serious: Yes (Other)
  Sender: FDA-Public Use
  Company Number: US-BAYER-201013210BCC

PATIENT
  Age: 60 Year
  Sex: Female
  Weight: 68 kg

DRUGS (17)
  1. ASPIRIN [Suspect]
     Indication: PRODUCT USED FOR UNKNOWN INDICATION
     Dosage: TOTAL DAILY DOSE: 81 MG  UNIT DOSE: 81 MG
     Route: 048
     Dates: start: 20040101, end: 20090901
  2. EVOXAC [Concomitant]
     Indication: SJOGREN'S SYNDROME
     Dosage: TOTAL DAILY DOSE: 90 MG  UNIT DOSE: 30 MG
     Route: 065
  3. TEVA METHOTREXATE [Concomitant]
     Indication: SJOGREN'S SYNDROME
     Dosage: TOTAL DAILY DOSE: 2.5 MG  UNIT DOSE: 2.5 MG
     Route: 065
  4. REQUIP [Concomitant]
     Indication: RESTLESS LEGS SYNDROME
     Dosage: TOTAL DAILY DOSE: 1 MG  UNIT DOSE: 1 MG
     Route: 065
  5. RESTASIS [Concomitant]
     Indication: KERATOCONJUNCTIVITIS SICCA
     Dosage: TOTAL DAILY DOSE: 2 GTT  UNIT DOSE: 1 GTT
     Route: 047
  6. SINGULAIR [Concomitant]
     Indication: ASTHMA
     Dosage: TOTAL DAILY DOSE: 10 MG  UNIT DOSE: 10 MG
     Route: 065
  7. TEVA VITAMIN D [Concomitant]
     Indication: IMMUNE ENHANCEMENT THERAPY
     Dosage: TOTAL DAILY DOSE: 50000 IU  UNIT DOSE: 50000 IU
     Route: 065
  8. VIVELLE-DOT [Concomitant]
     Indication: MIGRAINE PROPHYLAXIS
     Route: 065
  9. THYROID TAB [Concomitant]
     Indication: AUTOIMMUNE THYROIDITIS
     Dosage: TOTAL DAILY DOSE: 60 ?G  UNIT DOSE: 60 ?G
     Route: 065
  10. THYROID TAB [Concomitant]
     Dosage: TOTAL DAILY DOSE: 60 ?G  UNIT DOSE: 90 ?G
     Route: 065
  11. EPIPEN [Concomitant]
     Indication: ANAPHYLACTIC REACTION
     Route: 065
  12. MEDROL [Concomitant]
     Indication: ANAPHYLACTIC REACTION
     Route: 065
  13. ALBUTEROL [Concomitant]
     Route: 065
     Dates: start: 20090901
  14. GABITRIL [Concomitant]
     Route: 065
     Dates: start: 20090901
  15. HFA PROPELLANT [Concomitant]
     Route: 065
     Dates: start: 20090901
  16. MACROBID [Concomitant]
     Route: 065
     Dates: start: 20090101
  17. PROVENTIL [Concomitant]
     Route: 065
     Dates: start: 20090918

REACTIONS (4)
  - DYSKINESIA [None]
  - HYPERSENSITIVITY [None]
  - MYOCLONUS [None]
  - TREMOR [None]
